FAERS Safety Report 5276799-1 (Version None)
Quarter: 2007Q1

REPORT INFORMATION
  Report Type: 
  Country: None (occurrence: None)
  Receive Date: 20070321
  Receipt Date: 20061215
  Transmission Date: 20070707
  Serious: Yes (Hospitalization)
  Sender: FDA-Public Use
  Company Number: 237941K06USA

PATIENT
  Age: 46 Year
  Sex: Male

DRUGS (4)
  1. REBIF [Suspect]
     Indication: MULTIPLE SCLEROSIS
     Dosage: 44 MCG, 3 IN 1 WEEKS, SUBCUTANEOUS
     Route: 058
     Dates: start: 20020522
  2. WELLBUTRIN [Concomitant]
  3. FLOMAX (MORNIFLUMATE) [Concomitant]
  4. DITROPAN (OXYBUTYNIN /00538901/) [Concomitant]

REACTIONS (4)
  - BLOOD BILIRUBIN INCREASED [None]
  - BLOOD PRESSURE INCREASED [None]
  - GALLBLADDER PAIN [None]
  - PANCREATITIS ACUTE [None]
